FAERS Safety Report 16260261 (Version 1)
Quarter: 2019Q2

REPORT INFORMATION
  Report Type: Spontaneous
  Country: US (occurrence: US)
  Receive Date: 20190501
  Receipt Date: 20190501
  Transmission Date: 20190711
  Serious: No
  Sender: FDA-Public Use
  Company Number: PHEH2019US017697

PATIENT
  Sex: Male

DRUGS (1)
  1. POLY B SULFATE+TRIMETHOPRIM [Suspect]
     Active Substance: POLYMYXIN B SULFATE\TRIMETHOPRIM SULFATE
     Indication: CORNEAL ABRASION
     Dosage: UNK UNK, TID (3XDAY RIGHT EYE)
     Route: 065
     Dates: start: 20190422

REACTIONS (3)
  - Photophobia [Unknown]
  - Feeling abnormal [Unknown]
  - Eye pain [Unknown]
